FAERS Safety Report 11653447 (Version 1)
Quarter: 2015Q4

REPORT INFORMATION
  Report Type: Spontaneous
  Country: US (occurrence: US)
  Receive Date: 20151022
  Receipt Date: 20151022
  Transmission Date: 20160304
  Serious: Yes (Life-Threatening, Other)
  Sender: FDA-Public Use
  Company Number: US-GUERBET LLC-1043283

PATIENT
  Sex: Female
  Weight: 99.5 kg

DRUGS (2)
  1. DOTAREM [Suspect]
     Active Substance: GADOTERATE MEGLUMINE
     Indication: NUCLEAR MAGNETIC RESONANCE IMAGING
     Route: 042
     Dates: start: 20151009, end: 20151009
  2. SODIUM CHLORIDE. [Concomitant]
     Active Substance: SODIUM CHLORIDE
     Dates: start: 20151009, end: 20151009

REACTIONS (4)
  - Pruritus [Recovered/Resolved]
  - Nasal congestion [Recovered/Resolved]
  - Ocular hyperaemia [Recovered/Resolved]
  - Dyspnoea [Recovered/Resolved]

NARRATIVE: CASE EVENT DATE: 20151009
